FAERS Safety Report 16695773 (Version 6)
Quarter: 2021Q1

REPORT INFORMATION
  Report Type: Report from Study
  Country: US (occurrence: US)
  Receive Date: 20190813
  Receipt Date: 20210322
  Transmission Date: 20210419
  Serious: No
  Sender: FDA-Public Use
  Company Number: PHEH2019US033085

PATIENT
  Sex: Female

DRUGS (2)
  1. COSENTYX [Suspect]
     Active Substance: SECUKINUMAB
     Dosage: 300 MG, QMO
     Route: 058
  2. COSENTYX [Suspect]
     Active Substance: SECUKINUMAB
     Indication: PSORIASIS
     Dosage: UNK UNK, UNKNOWN
     Route: 065

REACTIONS (8)
  - Rash [Unknown]
  - Ear pruritus [Unknown]
  - Psoriasis [Unknown]
  - Condition aggravated [Unknown]
  - Injection site haemorrhage [Unknown]
  - Skin irritation [Unknown]
  - Eyelid irritation [Unknown]
  - Pruritus [Unknown]
